FAERS Safety Report 20060046 (Version 4)
Quarter: 2022Q1

REPORT INFORMATION
  Report Type: Report from Study
  Country: US (occurrence: US)
  Receive Date: 20211111
  Receipt Date: 20220203
  Transmission Date: 20220423
  Serious: Yes (Hospitalization, Other)
  Sender: FDA-Public Use
  Company Number: US-ABBVIE-21K-163-4154049-00

PATIENT
  Age: 77 Year
  Sex: Female

DRUGS (3)
  1. RINVOQ [Suspect]
     Active Substance: UPADACITINIB
     Indication: Rheumatoid arthritis
     Route: 048
  2. RINVOQ [Suspect]
     Active Substance: UPADACITINIB
     Route: 048
  3. PFIZER-BIONTECH COVID-19 VACCINE [Suspect]
     Active Substance: TOZINAMERAN
     Indication: COVID-19 immunisation
     Route: 030

REACTIONS (10)
  - Cardiac pacemaker insertion [Unknown]
  - Internal haemorrhage [Unknown]
  - Upper limb fracture [Unknown]
  - Fall [Unknown]
  - Ankle fracture [Unknown]
  - Hypotension [Unknown]
  - COVID-19 [Unknown]
  - Staphylococcal infection [Unknown]
  - Dysarthria [Unknown]
  - Vascular procedure complication [Unknown]

NARRATIVE: CASE EVENT DATE: 20210101
